FAERS Safety Report 4568436-6 (Version None)
Quarter: 2005Q1

REPORT INFORMATION
  Report Type: 
  Country: None (occurrence: None)
  Receive Date: 20050131
  Receipt Date: 20050125
  Transmission Date: 20050727
  Serious: Yes (Life-Threatening)
  Sender: FDA-Public Use
  Company Number: TCI2004A04454

PATIENT
  Age: 68 Year
  Sex: Female

DRUGS (4)
  1. ACTOS [Suspect]
     Indication: INSULIN RESISTANT DIABETES
     Dosage: 15 MG (15 MG, 1 IN 1 D) PER ORAL
     Route: 048
     Dates: start: 20031211, end: 20041128
  2. DIOVAN [Concomitant]
  3. GLYBURIDE [Concomitant]
  4. DIGITOXIN TAB [Concomitant]

REACTIONS (3)
  - BLOOD GLUCOSE INCREASED [None]
  - GLYCOSYLATED HAEMOGLOBIN INCREASED [None]
  - HYPERKALAEMIA [None]
